FAERS Safety Report 18913938 (Version 1)
Quarter: 2021Q1

REPORT INFORMATION
  Report Type: Spontaneous
  Country: US (occurrence: US)
  Receive Date: 20210218
  Receipt Date: 20210218
  Transmission Date: 20210420
  Serious: No
  Sender: FDA-Public Use
  Company Number: US-NOVOPROD-725975

PATIENT
  Age: 66 Year
  Sex: Female

DRUGS (1)
  1. VICTOZA [Suspect]
     Active Substance: LIRAGLUTIDE
     Indication: TYPE 1 DIABETES MELLITUS
     Dosage: 0.6 MG, QD
     Route: 058
     Dates: start: 202003, end: 202004

REACTIONS (5)
  - Injection site erythema [Unknown]
  - Off label use [Recovered/Resolved]
  - Injection site mass [Unknown]
  - Rash [Recovered/Resolved]
  - Injection site rash [Unknown]

NARRATIVE: CASE EVENT DATE: 202003
